FAERS Safety Report 24450251 (Version 1)
Quarter: 2024Q4

REPORT INFORMATION
  Report Type: Spontaneous
  Country: HR (occurrence: HR)
  Receive Date: 20241017
  Receipt Date: 20241017
  Transmission Date: 20250114
  Serious: Yes (Other)
  Sender: TEVA
  Company Number: None

PATIENT
  Age: 47 Year
  Sex: Male

DRUGS (1)
  1. OXAZEPAM [Suspect]
     Active Substance: OXAZEPAM
     Indication: Product used for unknown indication
     Route: 048
     Dates: start: 20240829, end: 20240829

REACTIONS (2)
  - Confusional state [Unknown]
  - Drug abuse [Unknown]

NARRATIVE: CASE EVENT DATE: 20240829
